FAERS Safety Report 7631313-8 (Version None)
Quarter: 2011Q3

REPORT INFORMATION
  Report Type: 
  Country: None (occurrence: None)
  Receive Date: 20110725
  Receipt Date: 20110715
  Transmission Date: 20111222
  Serious: Yes (Hospitalization)
  Sender: FDA-Public Use
  Company Number: JP-AMGEN-JPNCT2011016058

PATIENT
  Age: 84 Year
  Sex: Female
  Weight: 52 kg

DRUGS (5)
  1. CALCICHEW D3 [Concomitant]
     Indication: OSTEOPOROSIS
     Dosage: 2 DF, QD
     Route: 048
     Dates: start: 20061106, end: 20110305
  2. PETROLATUM WHITE [Concomitant]
     Indication: PRODUCT USED FOR UNKNOWN INDICATION
     Dosage: ACCORDINGLY OPTIMUM DOSE
     Route: 062
  3. DENOSUMAB [Suspect]
     Indication: OSTEOPOROSIS
     Dosage: DENOSUMAB 60MG OR PLACEBO
     Route: 058
     Dates: start: 20101201
  4. LOCOID [Concomitant]
     Indication: PRODUCT USED FOR UNKNOWN INDICATION
     Dosage: ACCORDINGLY OPTIMUM DOSE
     Route: 062
  5. NORVASC [Concomitant]
     Route: 048
     Dates: start: 20100512

REACTIONS (1)
  - CHOLELITHIASIS [None]
